FAERS Safety Report 8019736-9 (Version None)
Quarter: 2012Q1

REPORT INFORMATION
  Report Type: 
  Country: None (occurrence: None)
  Receive Date: 20120103
  Receipt Date: 20111214
  Transmission Date: 20120608
  Serious: Yes (Other)
  Sender: FDA-Public Use
  Company Number: JP-GLAXOSMITHKLINE-B0770228A

PATIENT
  Sex: Female

DRUGS (3)
  1. FLUTICASONE PROPIONATE/SALMETEROL [Suspect]
     Indication: PRODUCT USED FOR UNKNOWN INDICATION
     Dosage: 200MCG PER DAY
     Route: 055
  2. NASONEX [Concomitant]
     Dosage: 2IUAX PER DAY
     Route: 045
  3. ONON [Concomitant]
     Dosage: 4IUAX PER DAY
     Route: 048

REACTIONS (7)
  - FEELING ABNORMAL [None]
  - TINNITUS [None]
  - STRESS [None]
  - SUDDEN HEARING LOSS [None]
  - IRRITABILITY [None]
  - FATIGUE [None]
  - INSOMNIA [None]
